FAERS Safety Report 9738573 (Version 2)
Quarter: 2013Q4

REPORT INFORMATION
  Report Type: Spontaneous
  Country: CH (occurrence: CH)
  Receive Date: 20131209
  Receipt Date: 20131213
  Transmission Date: 20140711
  Serious: Yes (Hospitalization)
  Sender: FDA-Public Use
  Company Number: CH-009507513-1311CHE012820

PATIENT
  Age: 59 Year
  Sex: Male

DRUGS (6)
  1. COSAAR PLUS [Suspect]
     Indication: ESSENTIAL HYPERTENSION
     Dosage: UNKNOWN
     Route: 048
  2. HYGROTON [Suspect]
     Indication: ESSENTIAL HYPERTENSION
     Dosage: 25MG DAILY, ONCE DAILY
     Route: 048
     Dates: start: 20131014, end: 20131021
  3. TORSEMIDE [Suspect]
     Indication: ESSENTIAL HYPERTENSION
     Dosage: 5 MG, ONCE DAILY
     Route: 048
     Dates: start: 20131021, end: 20131101
  4. DILZEM [Suspect]
     Indication: ESSENTIAL HYPERTENSION
     Dosage: 90 MG DAILY, BID
     Route: 048
     Dates: start: 20131002
  5. CARDURA [Suspect]
     Indication: ESSENTIAL HYPERTENSION
     Dosage: 180MG, ONCE DAILY
     Route: 048
     Dates: start: 20131002
  6. APROVEL [Concomitant]
     Indication: ESSENTIAL HYPERTENSION
     Dosage: UNKNOWN
     Route: 048

REACTIONS (1)
  - Drug eruption [Recovering/Resolving]
